FAERS Safety Report 5947282-2 (Version None)
Quarter: 2008Q4

REPORT INFORMATION
  Report Type: 
  Country: None (occurrence: None)
  Receive Date: 20081110
  Receipt Date: 20081107
  Transmission Date: 20090506
  Serious: Yes (Hospitalization)
  Sender: FDA-Public Use
  Company Number: US-ROXANE LABORATORIES, INC.-2008-BP-12010RO

PATIENT
  Sex: Female
  Weight: 68 kg

DRUGS (3)
  1. DEXAMETHASONE [Suspect]
     Indication: BRAIN OEDEMA
     Dosage: 16MG
     Route: 048
     Dates: start: 20080617
  2. SUNITINIB MALATE [Suspect]
     Indication: METASTATIC RENAL CELL CARCINOMA
     Dosage: 37.5MG
     Route: 048
     Dates: start: 20080519, end: 20080701
  3. SUNITINIB MALATE [Suspect]
     Dosage: 37.5MG
     Route: 048
     Dates: start: 20080708

REACTIONS (7)
  - ANAEMIA [None]
  - GASTRIC ULCER [None]
  - GASTROINTESTINAL HAEMORRHAGE [None]
  - HIATUS HERNIA [None]
  - OESOPHAGITIS [None]
  - RECTAL HAEMORRHAGE [None]
  - SYNCOPE [None]
